FAERS Safety Report 25117536 (Version 2)
Quarter: 2025Q2

REPORT INFORMATION
  Report Type: Spontaneous
  Country: AU (occurrence: None)
  Receive Date: 20250325
  Receipt Date: 20250414
  Transmission Date: 20250716
  Serious: Yes (Other)
  Sender: ORION
  Company Number: AU-PFIZER INC-202500061162

PATIENT
  Sex: Female

DRUGS (3)
  1. DIETARY SUPPLEMENT [Suspect]
     Active Substance: DIETARY SUPPLEMENT
     Indication: Product used for unknown indication
  2. METHOTREXATE (METHOTREXATE SODIUM) [Concomitant]
     Active Substance: METHOTREXATE SODIUM
  3. DBL LEUCOVORIN CALCIUM [Concomitant]

REACTIONS (3)
  - Neuropathy peripheral [Unknown]
  - Vitamin B6 increased [Unknown]
  - Blood copper increased [Unknown]

NARRATIVE: CASE EVENT DATE: 20250101
